FAERS Safety Report 17558513 (Version 1)
Quarter: 2020Q1

REPORT INFORMATION
  Report Type: Other
  Country: DE (occurrence: US)
  Receive Date: 20200318
  Receipt Date: 20200318
  Transmission Date: 20200409
  Serious: Yes (Hospitalization, Other)
  Sender: FDA-Public Use
  Company Number: US-C B FLEET CO INC-202003-US-001051

PATIENT
  Age: 62 Year
  Sex: Female

DRUGS (2)
  1. ASPIRIN. [Suspect]
     Active Substance: ASPIRIN
     Indication: PRODUCT USED FOR UNKNOWN INDICATION
     Dosage: 325 MILLIGRAMS DAILY, UNKNOWN DOSING
     Route: 048
  2. APIXABAN [Suspect]
     Active Substance: APIXABAN

REACTIONS (4)
  - Haematemesis [Recovered/Resolved]
  - Anaemia [Recovered/Resolved]
  - Obstruction gastric [Recovered/Resolved]
  - Melaena [Recovered/Resolved]
